FAERS Safety Report 6211829-1 (Version None)
Quarter: 2009Q2

REPORT INFORMATION
  Report Type: 
  Country: None (occurrence: None)
  Receive Date: 20090602
  Receipt Date: 20090529
  Transmission Date: 20091009
  Serious: No
  Sender: FDA-Public Use
  Company Number: US-B.I. PHARMACEUTICALS,INC./RIDGEFIELD-2009-BP-03367BP

PATIENT
  Age: 68 Year
  Sex: Female

DRUGS (5)
  1. MIRAPEX [Suspect]
     Indication: RESTLESS LEGS SYNDROME
     Dosage: 1MG
  2. REQUIP [Concomitant]
  3. NEXIUM [Concomitant]
  4. CYCLOBENZAPRINE [Concomitant]
  5. ADVAIR HFA [Concomitant]

REACTIONS (1)
  - GAMBLING [None]
